FAERS Safety Report 16193267 (Version 2)
Quarter: 2019Q2

REPORT INFORMATION
  Report Type: Spontaneous
  Country: US (occurrence: US)
  Receive Date: 20190413
  Receipt Date: 20190517
  Transmission Date: 20190711
  Serious: Yes (Other)
  Sender: FDA-Public Use
  Company Number: US-JNJFOC-20190329977

PATIENT
  Age: 24 Year
  Sex: Male
  Weight: 94.35 kg

DRUGS (6)
  1. HALDOL DECANOATE [Suspect]
     Active Substance: HALOPERIDOL DECANOATE
     Indication: SCHIZOAFFECTIVE DISORDER
     Route: 030
  2. BUSPAR [Concomitant]
     Active Substance: BUSPIRONE HYDROCHLORIDE
     Route: 065
  3. HALDOL DECANOATE [Suspect]
     Active Substance: HALOPERIDOL DECANOATE
     Indication: SCHIZOAFFECTIVE DISORDER
     Route: 030
     Dates: end: 20190320
  4. HALOPERIDOL. [Suspect]
     Active Substance: HALOPERIDOL
     Indication: SCHIZOAFFECTIVE DISORDER
     Route: 048
  5. LITHIUM. [Concomitant]
     Active Substance: LITHIUM
     Route: 065
  6. LATUDA [Concomitant]
     Active Substance: LURASIDONE HYDROCHLORIDE
     Route: 065

REACTIONS (8)
  - Restlessness [Unknown]
  - Schizophrenia [Unknown]
  - Feeling abnormal [Unknown]
  - Scratch [Unknown]
  - Product label issue [Unknown]
  - Abnormal behaviour [Unknown]
  - Injury [Unknown]
  - Therapeutic product effect incomplete [Unknown]

NARRATIVE: CASE EVENT DATE: 201802
